FAERS Safety Report 9335411 (Version 1)
Quarter: 2013Q2

REPORT INFORMATION
  Report Type: Spontaneous
  Country: GB (occurrence: GB)
  Receive Date: 20130606
  Receipt Date: 20130606
  Transmission Date: 20140414
  Serious: Yes (Other)
  Sender: FDA-Public Use
  Company Number: GB-009507513-1306GBR000702

PATIENT
  Age: 51 Year
  Sex: Female
  Weight: 87.5 kg

DRUGS (1)
  1. IMPLANON [Suspect]

REACTIONS (1)
  - Ocular hypertension [Recovering/Resolving]
